FAERS Safety Report 13041333 (Version 1)
Quarter: 2016Q4

REPORT INFORMATION
  Report Type: Spontaneous
  Country: US (occurrence: US)
  Receive Date: 20161219
  Receipt Date: 20161219
  Transmission Date: 20170207
  Serious: No
  Sender: FDA-Public Use
  Company Number: US-ROCHE-1056965

PATIENT
  Age: 65 Year
  Sex: Male

DRUGS (1)
  1. ZELBORAF [Suspect]
     Active Substance: VEMURAFENIB
     Indication: MALIGNANT MELANOMA
     Route: 048
     Dates: start: 20120320

REACTIONS (8)
  - Myalgia [Unknown]
  - Fatigue [Unknown]
  - Sunburn [Unknown]
  - Alopecia [Unknown]
  - Dermatitis [Not Recovered/Not Resolved]
  - Arthralgia [Unknown]
  - Rash [Unknown]
  - Skin exfoliation [Unknown]

NARRATIVE: CASE EVENT DATE: 20120406
